FAERS Safety Report 24976991 (Version 2)
Quarter: 2025Q1

REPORT INFORMATION
  Report Type: Spontaneous
  Country: ES (occurrence: ES)
  Receive Date: 20250217
  Receipt Date: 20250305
  Transmission Date: 20250409
  Serious: Yes (Death, Life-Threatening, Hospitalization, Disabling, Other)
  Sender: NORDIC PHARMA
  Company Number: ES-ARISTO PHARMA-FENT-OMEP-PARA202412261

PATIENT
  Age: 75 Year
  Sex: Male
  Weight: 86.4 kg

DRUGS (29)
  1. METHOTREXATE [Suspect]
     Active Substance: METHOTREXATE
     Indication: Product used for unknown indication
     Route: 065
  2. VIAFLO PLASMALYTE 148, SOLUCI?N PARA PERFUSI?N [MAGNESIUM CHLORIDE,... [Concomitant]
     Indication: Product used for unknown indication
     Dates: start: 20200823, end: 20200823
  3. acetylcysteine [ACETYLCYSTEINE] [Concomitant]
     Indication: Product used for unknown indication
     Dates: start: 20200811, end: 20200817
  4. amlodipine [AMLODIPINE] [Concomitant]
     Indication: Product used for unknown indication
     Dates: start: 20200810, end: 20200811
  5. bemiparin [BEMIPARIN] [Concomitant]
     Indication: Product used for unknown indication
     Dates: start: 20200808, end: 20200811
  6. CALCIUM GLUCONATE [Concomitant]
     Active Substance: CALCIUM GLUCONATE
     Indication: Product used for unknown indication
     Dates: start: 20200824
  7. captopril [CAPTOPRIL] [Concomitant]
     Indication: Product used for unknown indication
     Dates: start: 20200808, end: 20200810
  8. ceftriaxone [CEFTRIAXONE] [Concomitant]
     Indication: Product used for unknown indication
     Dates: start: 20200810, end: 20200813
  9. DEXAMETHASONE [Concomitant]
     Active Substance: DEXAMETHASONE
     Indication: Product used for unknown indication
     Dates: start: 20200810, end: 20200811
  10. haloperidol [HALOPERIDOL] [Concomitant]
     Indication: Product used for unknown indication
     Dates: start: 20200812, end: 20200812
  11. paraffin [PARAFFIN] [Concomitant]
     Indication: Product used for unknown indication
     Dates: start: 20200811, end: 20200819
  12. quetiapine [QUETIAPINE] [Concomitant]
     Indication: Product used for unknown indication
     Dates: start: 20200818, end: 20200818
  13. Propofol Claris 20 mg/ml emulsion inyectable y para perfusion EFG [... [Concomitant]
     Indication: Product used for unknown indication
     Route: 065
     Dates: start: 20200822
  14. ENOXAPARIN SODIUM [Concomitant]
     Active Substance: ENOXAPARIN SODIUM
     Indication: Product used for unknown indication
     Route: 065
     Dates: start: 20200816
  15. ENOXAPARIN SODIUM [Concomitant]
     Active Substance: ENOXAPARIN SODIUM
     Indication: Product used for unknown indication
     Route: 065
     Dates: start: 20200810, end: 20200814
  16. FENTANYL [Concomitant]
     Active Substance: FENTANYL
     Indication: Product used for unknown indication
     Route: 065
     Dates: start: 20200822
  17. HYDROCORTISONE [Concomitant]
     Active Substance: HYDROCORTISONE
     Indication: Product used for unknown indication
     Route: 065
     Dates: start: 20200824
  18. ALBUMIN HUMAN [Concomitant]
     Active Substance: ALBUMIN HUMAN
     Indication: Product used for unknown indication
     Route: 065
     Dates: start: 20200824
  19. FUROSEMIDE [Concomitant]
     Active Substance: FUROSEMIDE
     Indication: Product used for unknown indication
     Route: 065
     Dates: start: 20200821, end: 20200824
  20. MIDAZOLAM [Concomitant]
     Active Substance: MIDAZOLAM
     Indication: Product used for unknown indication
     Route: 065
     Dates: start: 20200822
  21. Isotonic electrolyte solution [Concomitant]
     Indication: Product used for unknown indication
     Route: 065
  22. ACETAMINOPHEN [Concomitant]
     Active Substance: ACETAMINOPHEN
     Indication: Product used for unknown indication
     Route: 065
     Dates: start: 20200811
  23. AMIODARONE [Concomitant]
     Active Substance: AMIODARONE
     Indication: Product used for unknown indication
     Route: 065
     Dates: start: 20200823, end: 20200823
  24. OMEPRAZOLE [Concomitant]
     Active Substance: OMEPRAZOLE
     Indication: Product used for unknown indication
     Route: 065
     Dates: start: 20200811
  25. CISATRACURIUM BESYLATE [Concomitant]
     Active Substance: CISATRACURIUM BESYLATE
     Indication: Product used for unknown indication
     Route: 065
     Dates: start: 20200822
  26. INSULIN NOS [Concomitant]
     Active Substance: INSULIN NOS
     Indication: Product used for unknown indication
     Route: 065
     Dates: start: 20200810, end: 20200811
  27. MAGNESIUM [Concomitant]
     Active Substance: MAGNESIUM
     Indication: Product used for unknown indication
     Route: 065
  28. INSULIN NOS [Concomitant]
     Active Substance: INSULIN NOS
     Route: 065
  29. melatonin [MELATONIN] [Concomitant]
     Indication: Product used for unknown indication
     Dates: start: 20200814, end: 20200818

REACTIONS (6)
  - Hypoxia [Fatal]
  - Cyanosis [Fatal]
  - Klebsiella infection [Fatal]
  - Hypokalaemia [Fatal]
  - Hypoxia [Fatal]
  - Hyponatraemia [Fatal]

NARRATIVE: CASE EVENT DATE: 20200823
